FAERS Safety Report 21992789 (Version 1)
Quarter: 2023Q1

REPORT INFORMATION
  Report Type: Spontaneous
  Country: FR (occurrence: FR)
  Receive Date: 20230215
  Receipt Date: 20230215
  Transmission Date: 20230417
  Serious: Yes (Hospitalization)
  Sender: FDA-Public Use
  Company Number: FR-BoehringerIngelheim-2023-BI-218700

PATIENT
  Age: 83 Year
  Sex: Male

DRUGS (3)
  1. DIPYRIDAMOLE [Suspect]
     Active Substance: DIPYRIDAMOLE
     Indication: Product used for unknown indication
     Route: 048
     Dates: start: 2020
  2. LASILIX Furosemide [Concomitant]
     Indication: Product used for unknown indication
  3. GINKGO [Concomitant]
     Active Substance: GINKGO
     Indication: Product used for unknown indication

REACTIONS (1)
  - Peripheral swelling [Not Recovered/Not Resolved]
